FAERS Safety Report 8417392 (Version 6)
Quarter: 2014Q1

REPORT INFORMATION
  Report Type: Report from Study
  Country: CA (occurrence: CA)
  Receive Date: 20120220
  Receipt Date: 20140124
  Transmission Date: 20141002
  Serious: Yes (Other)
  Sender: FDA-Public Use
  Company Number: CA-ROCHE-1039484

PATIENT
  Sex: Male
  Weight: 88.9 kg

DRUGS (19)
  1. ACTEMRA [Suspect]
     Indication: RHEUMATOID ARTHRITIS
     Route: 042
     Dates: start: 20111018, end: 20111208
  2. RITUXAN [Suspect]
     Indication: RHEUMATOID ARTHRITIS
     Route: 042
     Dates: start: 20130128
  3. METHOTREXATE [Suspect]
     Indication: PRODUCT USED FOR UNKNOWN INDICATION
     Route: 065
  4. FOLIC ACID [Concomitant]
  5. PREDNISONE [Concomitant]
  6. ARICEPT [Concomitant]
  7. PANTOLOC [Concomitant]
  8. ASA [Concomitant]
  9. LIPITOR [Concomitant]
  10. LYRICA [Concomitant]
  11. CLONAZEPAM [Concomitant]
     Route: 065
  12. NOVO-GESIC (CANADA) [Concomitant]
  13. NAPROXEN [Concomitant]
     Route: 065
  14. PLAQUENIL [Concomitant]
  15. DIPHENHYDRAMINE HCL [Concomitant]
     Indication: PREMEDICATION
     Route: 048
     Dates: start: 20130128
  16. ACETAMINOPHEN [Concomitant]
     Indication: PREMEDICATION
     Route: 048
     Dates: start: 20130128
  17. METHYLPREDNISOLON [Concomitant]
     Indication: PREMEDICATION
     Route: 042
     Dates: start: 20130128
  18. IMURAN [Concomitant]
  19. AZITHROMYCIN [Concomitant]
     Route: 065

REACTIONS (8)
  - Skin reaction [Unknown]
  - Drug ineffective [Not Recovered/Not Resolved]
  - Weight decreased [Unknown]
  - Pain [Not Recovered/Not Resolved]
  - Back pain [Not Recovered/Not Resolved]
  - Pain in extremity [Not Recovered/Not Resolved]
  - Lung disorder [Unknown]
  - Dyspnoea [Recovering/Resolving]
